FAERS Safety Report 13132563 (Version 1)
Quarter: 2017Q1

REPORT INFORMATION
  Report Type: Report from Study
  Country: None (occurrence: US)
  Receive Date: 20170120
  Receipt Date: 20170120
  Transmission Date: 20170428
  Serious: Yes (Disabling, Other)
  Sender: FDA-Public Use
  Company Number: US-CLOVIS-2016-0338-0143

PATIENT
  Age: 63 Year
  Sex: Female
  Weight: 59.3 kg

DRUGS (12)
  1. PROMETHAZINE [Concomitant]
     Active Substance: PROMETHAZINE\PROMETHAZINE HYDROCHLORIDE
  2. HYDROCHLOROTHIAZIDE AND LISINOPRIL [Concomitant]
     Active Substance: HYDROCHLOROTHIAZIDE\LISINOPRIL
  3. MAGIC MOUTHWASH [Concomitant]
     Active Substance: DIPHENHYDRAMINE HYDROCHLORIDE\LIDOCAINE HYDROCHLORIDE\NYSTATIN
  4. ACETAMINOPHEN W/HYDROCODONE [Concomitant]
     Active Substance: ACETAMINOPHEN\HYDROCODONE
  5. ZOLPIDEM [Concomitant]
     Active Substance: ZOLPIDEM\ZOLPIDEM TARTRATE
  6. CO-338 [Suspect]
     Active Substance: RUCAPARIB
     Route: 048
     Dates: start: 20160526, end: 20160904
  7. CO-338 [Suspect]
     Active Substance: RUCAPARIB
     Indication: OVARIAN CANCER
     Route: 048
     Dates: start: 20160125, end: 20160525
  8. DIPHENHYDRAMINE W/IBUPROFEN [Concomitant]
     Active Substance: DIPHENHYDRAMINE HYDROCHLORIDE\IBUPROFEN
  9. AMLODIPINE W/OLMESARTAN [Concomitant]
     Active Substance: AMLODIPINE MALEATE\OLMESARTAN MEDOXOMIL
  10. MAGNESIUM SULFATE. [Concomitant]
     Active Substance: MAGNESIUM SULFATE
  11. MULTIVITAMINS [Concomitant]
     Active Substance: VITAMINS
  12. LORAZEPAM. [Concomitant]
     Active Substance: LORAZEPAM

REACTIONS (22)
  - Vasculitis [None]
  - Dystonia [None]
  - Amnesia [Recovered/Resolved with Sequelae]
  - Urinary tract infection [None]
  - Anxiety [None]
  - Meningioma [None]
  - Balance disorder [None]
  - Hypokalaemia [None]
  - Cerebrovascular disorder [None]
  - Headache [None]
  - Convulsive threshold lowered [None]
  - Obsessive-compulsive disorder [None]
  - Confusional state [Recovered/Resolved]
  - Mental status changes [Recovered/Resolved]
  - Seizure [Recovered/Resolved]
  - Incorrect dose administered [None]
  - Anaemia [None]
  - Brain scan abnormal [None]
  - Musculoskeletal stiffness [None]
  - Gliosis [None]
  - Constipation [None]
  - Toxic encephalopathy [None]

NARRATIVE: CASE EVENT DATE: 20160811
